FAERS Safety Report 15942606 (Version 3)
Quarter: 2019Q2

REPORT INFORMATION
  Report Type: Spontaneous
  Country: US (occurrence: US)
  Receive Date: 20190209
  Receipt Date: 20190502
  Transmission Date: 20190711
  Serious: Yes (Other)
  Sender: FDA-Public Use
  Company Number: US-ASTRAZENECA-2018SF64559

PATIENT
  Sex: Male
  Weight: 77.1 kg

DRUGS (40)
  1. PRILOSEC OTC [Suspect]
     Active Substance: OMEPRAZOLE MAGNESIUM
     Route: 048
     Dates: start: 2010, end: 2013
  2. LEVAQUIN [Concomitant]
     Active Substance: LEVOFLOXACIN
  3. MIRALAX [Concomitant]
     Active Substance: POLYETHYLENE GLYCOL 3350
  4. SPIRONOLACTONE. [Concomitant]
     Active Substance: SPIRONOLACTONE
  5. TRAZODONE [Concomitant]
     Active Substance: TRAZODONE HYDROCHLORIDE
  6. AMLODIPINE [Concomitant]
     Active Substance: AMLODIPINE BESYLATE
  7. FUROSEMIDE. [Concomitant]
     Active Substance: FUROSEMIDE
  8. RENVELA [Concomitant]
     Active Substance: SEVELAMER CARBONATE
  9. ZYRTEC [Concomitant]
     Active Substance: CETIRIZINE HYDROCHLORIDE
  10. ASPIRIN. [Concomitant]
     Active Substance: ASPIRIN
  11. COZAAR [Concomitant]
     Active Substance: LOSARTAN POTASSIUM
  12. DEXAMETHASONE. [Concomitant]
     Active Substance: DEXAMETHASONE
  13. GLYBURIDE. [Concomitant]
     Active Substance: GLYBURIDE
  14. SENSIPAR [Concomitant]
     Active Substance: CINACALCET HYDROCHLORIDE
  15. LOSARTAN. [Concomitant]
     Active Substance: LOSARTAN
  16. BISACODYL. [Concomitant]
     Active Substance: BISACODYL
  17. GABAPENTIN. [Concomitant]
     Active Substance: GABAPENTIN
  18. LISINOPRIL. [Concomitant]
     Active Substance: LISINOPRIL
  19. PROCRIT [Concomitant]
     Active Substance: ERYTHROPOIETIN
  20. KEFLEX [Concomitant]
     Active Substance: CEPHALEXIN
  21. MELATONIN [Concomitant]
     Active Substance: MELATONIN
  22. ZEMPLAR [Concomitant]
     Active Substance: PARICALCITOL
  23. OXYCODONE [Concomitant]
     Active Substance: OXYCODONE
  24. ATORVASTATIN [Concomitant]
     Active Substance: ATORVASTATIN
  25. MEVACOR [Concomitant]
     Active Substance: LOVASTATIN
  26. COLACE [Concomitant]
     Active Substance: DOCUSATE SODIUM
  27. TRAMADOL. [Concomitant]
     Active Substance: TRAMADOL
  28. PANTOPRAZOLE [Concomitant]
     Active Substance: PANTOPRAZOLE
  29. PLAVIX [Concomitant]
     Active Substance: CLOPIDOGREL BISULFATE
  30. PRILOSEC [Suspect]
     Active Substance: OMEPRAZOLE MAGNESIUM
     Route: 048
     Dates: start: 2010, end: 2013
  31. ACETAMINOPHEN. [Concomitant]
     Active Substance: ACETAMINOPHEN
  32. CETIRIZINE [Concomitant]
     Active Substance: CETIRIZINE HYDROCHLORIDE
  33. GLIPIZIDE. [Concomitant]
     Active Substance: GLIPIZIDE
  34. LANTUS [Concomitant]
     Active Substance: INSULIN GLARGINE
  35. MELATONIN [Concomitant]
     Active Substance: MELATONIN
  36. NORVASC [Concomitant]
     Active Substance: AMLODIPINE BESYLATE
  37. METFORMIN [Concomitant]
     Active Substance: METFORMIN HYDROCHLORIDE
  38. VICODIN [Concomitant]
     Active Substance: ACETAMINOPHEN\HYDROCODONE BITARTRATE
  39. LANTISEPTIC [Concomitant]
  40. PERCOCET [Concomitant]
     Active Substance: ACETAMINOPHEN\OXYCODONE HYDROCHLORIDE

REACTIONS (6)
  - Renal failure [Unknown]
  - Chronic kidney disease [Unknown]
  - End stage renal disease [Unknown]
  - Tubulointerstitial nephritis [Not Recovered/Not Resolved]
  - Nephrogenic anaemia [Unknown]
  - Acute kidney injury [Not Recovered/Not Resolved]
